FAERS Safety Report 6432048-X (Version None)
Quarter: 2009Q4

REPORT INFORMATION
  Report Type: 
  Country: None (occurrence: None)
  Receive Date: 20091109
  Receipt Date: 20091102
  Transmission Date: 20100525
  Serious: Yes (Life-Threatening, Hospitalization)
  Sender: FDA-Public Use
  Company Number: US-ROCHE-663701

PATIENT
  Sex: Female
  Weight: 48.5 kg

DRUGS (6)
  1. BONIVA [Suspect]
     Indication: OSTEOPOROSIS
     Dosage: RECEIVED ONCE; OTHER INDICATION: HYPERCALAEMIA
     Route: 042
     Dates: start: 20091019, end: 20091019
  2. LOVASTATIN [Concomitant]
     Dosage: AT NIGHT OR EVERY NIGHT (QHS)
     Route: 048
  3. ENALAPRIL [Concomitant]
     Indication: HYPERTENSION
     Route: 048
  4. SYNTHROID [Concomitant]
     Indication: HYPOTHYROIDISM
     Route: 048
  5. OMEGA [Concomitant]
     Dosage: DRUG: OEMGA 3
  6. FOSAMAX [Concomitant]
     Indication: OSTEOPOROSIS
     Dosage: DRUG REPORTED AS FOSAMAX (ALENDRONATE).
     Route: 048
     Dates: end: 20091001

REACTIONS (5)
  - ATRIAL FIBRILLATION [None]
  - DRY MOUTH [None]
  - FEELING ABNORMAL [None]
  - HYPOTENSION [None]
  - NAUSEA [None]
